FAERS Safety Report 10328718 (Version 2)
Quarter: 2014Q3

REPORT INFORMATION
  Report Type: Spontaneous
  Country: FR (occurrence: FR)
  Receive Date: 20140721
  Receipt Date: 20140725
  Transmission Date: 20150326
  Serious: Yes (Death)
  Sender: FDA-Public Use
  Company Number: FR-PFIZER INC-2014201593

PATIENT
  Age: 56 Year
  Sex: Male

DRUGS (11)
  1. EXFORGE [Concomitant]
     Active Substance: AMLODIPINE BESYLATE\VALSARTAN
     Dosage: UNK
  2. CORDARONE [Suspect]
     Active Substance: AMIODARONE HYDROCHLORIDE
     Indication: ATRIAL FIBRILLATION
     Dosage: 200 MG (1 TABLET), DAILY
     Route: 048
     Dates: end: 20140511
  3. SERETIDE [Concomitant]
     Active Substance: FLUTICASONE FUROATE\SALMETEROL XINAFOATE
     Dosage: UNK
  4. BISOPROLOL [Concomitant]
     Active Substance: BISOPROLOL
     Dosage: UNK
  5. PANTOPRAZOLE [Concomitant]
     Active Substance: PANTOPRAZOLE SODIUM
     Dosage: UNK
  6. KARDEGIC [Interacting]
     Active Substance: ASPIRIN LYSINE
     Indication: MYOCARDIAL ISCHAEMIA
     Dosage: 160 MG (1 DOSE FORM), DAILY
     Route: 048
     Dates: end: 20140511
  7. INEGY [Concomitant]
     Active Substance: EZETIMIBE\SIMVASTATIN
     Dosage: UNK
  8. LASILIX [Concomitant]
     Active Substance: FUROSEMIDE
     Dosage: UNK
  9. TEMESTA [Concomitant]
     Active Substance: LORAZEPAM
     Dosage: UNK
  10. PRADAXA [Interacting]
     Active Substance: DABIGATRAN ETEXILATE MESYLATE
     Indication: ATRIAL FIBRILLATION
     Dosage: 1 DF, ALTERNATE DAY
     Route: 048
     Dates: end: 20140511
  11. METFORMIN [Concomitant]
     Active Substance: METFORMIN HYDROCHLORIDE
     Dosage: UNK

REACTIONS (5)
  - Multi-organ failure [Fatal]
  - Cardiogenic shock [Fatal]
  - Drug interaction [Fatal]
  - Small intestinal haemorrhage [Fatal]
  - Overdose [Fatal]

NARRATIVE: CASE EVENT DATE: 20140511
